FAERS Safety Report 6789600-1 (Version None)
Quarter: 2010Q2

REPORT INFORMATION
  Report Type: 
  Country: None (occurrence: None)
  Receive Date: 20100624
  Receipt Date: 20100616
  Transmission Date: 20101027
  Serious: No
  Sender: FDA-Public Use
  Company Number: US-BIOGENIDEC-2010BI020567

PATIENT
  Sex: Female

DRUGS (1)
  1. TYSABRI [Suspect]
     Indication: MULTIPLE SCLEROSIS
     Route: 042
     Dates: start: 20100402

REACTIONS (5)
  - AGORAPHOBIA [None]
  - FATIGUE [None]
  - MIGRAINE [None]
  - PANIC ATTACK [None]
  - PHONOPHOBIA [None]
